FAERS Safety Report 9777372 (Version 2)
Quarter: 2014Q1

REPORT INFORMATION
  Report Type: Spontaneous
  Country: CO (occurrence: CO)
  Receive Date: 20131221
  Receipt Date: 20140108
  Transmission Date: 20141002
  Serious: Yes (Other)
  Sender: FDA-Public Use
  Company Number: PHHY2013CO149233

PATIENT
  Age: 73 Year
  Sex: Female
  Weight: 53 kg

DRUGS (6)
  1. ACLASTA [Suspect]
     Indication: OSTEOPOROSIS
     Dosage: 5 MG/100 ML, UNK
     Route: 042
     Dates: start: 20131210
  2. TAMOXIFEN [Concomitant]
     Dosage: UNK UKN, UNK
  3. SINOGAN [Concomitant]
     Dosage: UNK UKN, UNK
  4. AMLODIPINE [Concomitant]
     Dosage: UNK UKN, UNK
  5. CALCIBON D [Concomitant]
     Dosage: UNK UKN, UNK
  6. VIT D [Concomitant]
     Dosage: UNK UKN, UNK

REACTIONS (4)
  - Insomnia [Recovered/Resolved]
  - Arthralgia [Recovered/Resolved]
  - Pyrexia [Recovered/Resolved]
  - Malaise [Recovered/Resolved]
